FAERS Safety Report 16351035 (Version 1)
Quarter: 2019Q2

REPORT INFORMATION
  Report Type: Report from Study
  Country: KR (occurrence: KR)
  Receive Date: 20190524
  Receipt Date: 20190524
  Transmission Date: 20190711
  Serious: Yes (Hospitalization)
  Sender: FDA-Public Use
  Company Number: KR-CELLTRION INC.-2018KR023990

PATIENT

DRUGS (16)
  1. ARONAMINE C [Concomitant]
     Indication: VITAMIN SUPPLEMENTATION
     Dosage: 2 TAB DOSAGE FORM, BID
     Route: 048
     Dates: start: 20180716
  2. NEURONTIN [Concomitant]
     Active Substance: GABAPENTIN
     Indication: NEUROPATHY PERIPHERAL
     Dosage: 100 G, BID
     Route: 048
     Dates: start: 20180917, end: 20181022
  3. CHOP [Suspect]
     Active Substance: CYCLOPHOSPHAMIDE\DOXORUBICIN\PREDNISONE\VINCRISTINE
     Dosage: UNK
     Route: 042
  4. APETROL ES [Concomitant]
     Indication: DECREASED APPETITE
     Dosage: 5.2 ML, QD
     Route: 048
     Dates: start: 20180716
  5. TRUXIMA [Suspect]
     Active Substance: RITUXIMAB-ABBS
     Dosage: 750 MG,3 WEEK
     Route: 042
     Dates: start: 20180927, end: 20180927
  6. CHOP [Suspect]
     Active Substance: CYCLOPHOSPHAMIDE\DOXORUBICIN\PREDNISONE\VINCRISTINE
     Indication: DIFFUSE LARGE B-CELL LYMPHOMA
     Dosage: UNK
     Route: 042
     Dates: start: 20180725, end: 20180725
  7. FINASTAR [Concomitant]
     Indication: BENIGN PROSTATIC HYPERPLASIA
     Dosage: 5 MG, QD
     Route: 048
     Dates: start: 20180629
  8. BR SARTAN [Concomitant]
     Indication: HYPERTENSION
     Dosage: 50 MG QD
     Route: 048
     Dates: start: 20180629, end: 20181021
  9. GANAKHAN [Concomitant]
     Indication: PROPHYLAXIS
     Dosage: 50 MG, BID
     Route: 048
     Dates: start: 20180629, end: 20180808
  10. TRUXIMA [Suspect]
     Active Substance: RITUXIMAB-ABBS
     Indication: DIFFUSE LARGE B-CELL LYMPHOMA
     Dosage: 750 MG,3 WEEK
     Route: 042
     Dates: start: 20180725, end: 20180725
  11. CHOP [Suspect]
     Active Substance: CYCLOPHOSPHAMIDE\DOXORUBICIN\PREDNISONE\VINCRISTINE
     Dosage: UNK
     Route: 042
     Dates: start: 20180927, end: 20180927
  12. LIPITOR [Concomitant]
     Active Substance: ATORVASTATIN CALCIUM
     Indication: CEREBRAL INFARCTION
     Dosage: 10 MG, QD
     Route: 048
     Dates: start: 20180629, end: 20181029
  13. TRUXIMA [Suspect]
     Active Substance: RITUXIMAB-ABBS
     Dosage: 750 MG,3 WEEK
     Route: 042
  14. TRUXIMA [Suspect]
     Active Substance: RITUXIMAB-ABBS
     Dosage: 750 MG,3 WEEK
     Route: 042
  15. CHOP [Suspect]
     Active Substance: CYCLOPHOSPHAMIDE\DOXORUBICIN\PREDNISONE\VINCRISTINE
     Dosage: UNK
     Route: 042
  16. THRUPASS ODT [Concomitant]
     Indication: BENIGN PROSTATIC HYPERPLASIA
     Dosage: 4 MG, QD
     Route: 048
     Dates: start: 20180716

REACTIONS (1)
  - Supraventricular tachycardia [Recovering/Resolving]

NARRATIVE: CASE EVENT DATE: 20181006
